FAERS Safety Report 11192311 (Version 1)
Quarter: 2015Q2

REPORT INFORMATION
  Report Type: Spontaneous
  Country: US (occurrence: None)
  Receive Date: 20150615
  Receipt Date: 20150615
  Transmission Date: 20150821
  Serious: Yes (Hospitalization)
  Sender: FDA-Public Use
  Company Number: None

PATIENT
  Age: 63 Year
  Sex: Male

DRUGS (7)
  1. HYDROCHLOROTHIAZIDE. [Concomitant]
     Active Substance: HYDROCHLOROTHIAZIDE
  2. ZELBORAF [Suspect]
     Active Substance: VEMURAFENIB
     Indication: MALIGNANT MELANOMA
     Dosage: 240MG 2 TABS BID PO
     Route: 048
     Dates: start: 20131121
  3. OXYCODONE [Concomitant]
     Active Substance: OXYCODONE
  4. TEMAZEPAM. [Concomitant]
     Active Substance: TEMAZEPAM
  5. CLONIDINE. [Concomitant]
     Active Substance: CLONIDINE
  6. METOPROLOL [Concomitant]
     Active Substance: METOPROLOL
  7. SOMA [Concomitant]
     Active Substance: CARISOPRODOL

REACTIONS (2)
  - Headache [None]
  - Transient ischaemic attack [None]
